FAERS Safety Report 9046863 (Version 1)
Quarter: 2013Q1

REPORT INFORMATION
  Report Type: Spontaneous
  Country: US (occurrence: None)
  Receive Date: 20130129
  Receipt Date: 20130129
  Transmission Date: 20140127
  Serious: No
  Sender: FDA-Public Use
  Company Number: None

PATIENT
  Sex: Male

DRUGS (2)
  1. PAXIL CR .25 MG GENERIC [Suspect]
     Indication: OBSESSIVE-COMPULSIVE DISORDER
     Dosage: PAXIL CR .25 MG  1 IN THE MORNING
  2. PAXIL CR .25 MG GENERIC [Suspect]
     Indication: ANXIETY
     Dosage: PAXIL CR .25 MG  1 IN THE MORNING

REACTIONS (1)
  - Sexual dysfunction [None]
